FAERS Safety Report 8802179 (Version 1)
Quarter: 2012Q4

REPORT INFORMATION
  Report Type: 
  Country: US (occurrence: US)
  Receive Date: 20120921
  Receipt Date: 20120921
  Transmission Date: 20130627
  Serious: No
  Sender: FDA-Public Use
  Company Number: US-BAYER-2012-098361

PATIENT
  Sex: Male
  Weight: 77 kg

DRUGS (5)
  1. BETASERON [Suspect]
     Dosage: 0.25 mg, QOD
     Route: 058
  2. CITALOPRAM [Concomitant]
     Dosage: 10 UNK, UNK
  3. IBUPROFEN [Concomitant]
     Dosage: 200 mg, UNK
  4. MULTIVITAMIN PREPARATION + MINERAL SUPPLEMENT [Concomitant]
  5. VITAMIN D [Concomitant]

REACTIONS (1)
  - Influenza like illness [None]
